FAERS Safety Report 8492661-5 (Version None)
Quarter: 2012Q2

REPORT INFORMATION
  Report Type: 
  Country: None (occurrence: None)
  Receive Date: 20120628
  Receipt Date: 20120613
  Transmission Date: 20120825
  Serious: Yes (Other)
  Sender: FDA-Public Use
  Company Number: 2012032574

PATIENT
  Age: 49 Year
  Sex: Male

DRUGS (1)
  1. IMMUNE GLOBULIN (HUMAN) [Suspect]
     Indication: CHRONIC INFLAMMATORY DEMYELINATING POLYRADICULONEUROPATHY
     Dosage: 0.4 MG/KG/DAY, 5 DAYS, INTRAVENOUS
     Route: 042

REACTIONS (7)
  - HAEMODIALYSIS [None]
  - HYPERVOLAEMIA [None]
  - RENAL FAILURE ACUTE [None]
  - CONDITION AGGRAVATED [None]
  - PYREXIA [None]
  - ANAEMIA [None]
  - OFF LABEL USE [None]
